FAERS Safety Report 10865106 (Version 1)
Quarter: 2015Q1

REPORT INFORMATION
  Report Type: Report from Study
  Country: US (occurrence: US)
  Receive Date: 20150224
  Receipt Date: 20150224
  Transmission Date: 20150721
  Serious: No
  Sender: FDA-Public Use
  Company Number: US-MYLANLABS-2014S1006586

PATIENT
  Sex: Male
  Weight: 68.04 kg

DRUGS (4)
  1. AMNESTEEM [Suspect]
     Active Substance: ISOTRETINOIN
     Dosage: 40 MG,QD
     Route: 048
     Dates: start: 20140218, end: 20140318
  2. AMNESTEEM [Suspect]
     Active Substance: ISOTRETINOIN
     Indication: ACNE
     Dosage: 20 MG,QD
     Route: 048
     Dates: start: 20140218, end: 20140318
  3. AMNESTEEM [Suspect]
     Active Substance: ISOTRETINOIN
     Dosage: 40 MG,QD
     Route: 048
     Dates: start: 20131205, end: 20140106
  4. AMNESTEEM [Suspect]
     Active Substance: ISOTRETINOIN
     Dosage: 80 MG,QD
     Route: 048
     Dates: start: 20140106, end: 20140218

REACTIONS (4)
  - Lip haemorrhage [Recovered/Resolved]
  - Urticaria [Recovered/Resolved]
  - Epistaxis [Recovered/Resolved]
  - Dry skin [Recovered/Resolved]
